FAERS Safety Report 9370392 (Version 2)
Quarter: 2013Q3

REPORT INFORMATION
  Report Type: Spontaneous
  Country: CZ (occurrence: CZ)
  Receive Date: 20130626
  Receipt Date: 20130715
  Transmission Date: 20140515
  Serious: Yes (Other)
  Sender: FDA-Public Use
  Company Number: CZ-ACTAVIS-2013-11151

PATIENT
  Age: 45 Year
  Sex: Female

DRUGS (26)
  1. DOXORUBICIN (UNKNOWN) [Suspect]
     Indication: INVASIVE LOBULAR BREAST CARCINOMA
     Dosage: 60 MG/M2, ON DAY 1 AT INVERVALS OF 21 DAYS
     Route: 042
     Dates: start: 20111017
  2. DOXORUBICIN (UNKNOWN) [Suspect]
     Dosage: 60 MG/M2, ON DAY 1 AT INVERVALS OF 21 DAYS
     Route: 042
  3. DOXORUBICIN (UNKNOWN) [Suspect]
     Dosage: 60 MG/M2, ON DAY 1 AT INVERVALS OF 21 DAYS
     Route: 042
     Dates: start: 20111130
  4. DOXORUBICIN (UNKNOWN) [Suspect]
     Dosage: 60 MG/M2, ON DAY 1 AT INVERVALS OF 21 DAYS
     Route: 042
     Dates: start: 20111222
  5. CYCLOPHOSPHAMIDE (UNKNOWN) [Suspect]
     Indication: INVASIVE LOBULAR BREAST CARCINOMA
     Dosage: 600 MG/M2, ON DAY 1 AT AN INTERVAL OF 21 DAYS
     Route: 042
     Dates: start: 20111017
  6. CYCLOPHOSPHAMIDE (UNKNOWN) [Suspect]
     Dosage: 600 MG/M2, ON DAY 1 AT AN INTERVAL OF 21 DAYS
     Route: 042
  7. CYCLOPHOSPHAMIDE (UNKNOWN) [Suspect]
     Dosage: 600 MG/M2, ON DAY 1 AT AN INTERVAL OF 21 DAYS
     Route: 042
     Dates: start: 20111130
  8. CYCLOPHOSPHAMIDE (UNKNOWN) [Suspect]
     Dosage: 600 MG/M2, ON DAY 1 AT AN INTERVAL OF 21 DAYS
     Route: 042
     Dates: start: 20111222
  9. DEXAMETHASONE (UNKNOWN) [Suspect]
     Indication: INVASIVE LOBULAR BREAST CARCINOMA
     Dosage: 12 MG
     Route: 042
     Dates: start: 20111017
  10. DEXAMETHASONE (UNKNOWN) [Suspect]
     Indication: PREMEDICATION
     Dosage: 12 MG
     Route: 042
  11. DEXAMETHASONE (UNKNOWN) [Suspect]
     Dosage: 12 MG
     Route: 042
     Dates: start: 20111130
  12. DEXAMETHASONE (UNKNOWN) [Suspect]
     Dosage: 12 MG
     Route: 042
     Dates: start: 20111222
  13. DEXAMETHASONE (UNKNOWN) [Suspect]
     Dosage: 12 MG
     Route: 042
     Dates: start: 20120112
  14. RANITIDINE HYDROCHLORIDE (UNKNOWN) [Suspect]
     Indication: PREMEDICATION
     Dosage: 50 MG, 4 CYCLES
     Route: 042
  15. RANITIDINE HYDROCHLORIDE (UNKNOWN) [Suspect]
     Indication: INVASIVE LOBULAR BREAST CARCINOMA
  16. ONDANSETRON [Suspect]
     Indication: PREMEDICATION
     Dosage: UNK, 4 CYCLES
     Route: 042
  17. ONDANSETRON [Suspect]
     Indication: INVASIVE LOBULAR BREAST CARCINOMA
  18. APREPITANT [Suspect]
     Indication: INVASIVE LOBULAR BREAST CARCINOMA
     Dosage: UNK, 4 CYCLES
     Route: 048
     Dates: start: 20111017
  19. APREPITANT [Suspect]
     Indication: PREMEDICATION
  20. BISULEPIN [Suspect]
     Indication: INVASIVE LOBULAR BREAST CARCINOMA
     Dosage: 2 MG, 4 CYCLES
     Route: 042
  21. BISULEPIN [Suspect]
     Indication: PREMEDICATION
     Dosage: UNK
     Route: 065
     Dates: start: 20120619
  22. PACLITAXEL (UNKNOWN) [Suspect]
     Indication: INVASIVE LOBULAR BREAST CARCINOMA
     Dosage: 90 MG/M2, ON DAY 1, 12 CYCLES
     Route: 042
     Dates: start: 20120112, end: 20120405
  23. TRASTUZUMAB [Suspect]
     Indication: INVASIVE LOBULAR BREAST CARCINOMA
     Dosage: 4 MG/KG, FOR THE FIRST DOSE
     Route: 042
     Dates: start: 20120112, end: 20120405
  24. TRASTUZUMAB [Suspect]
     Dosage: 4 MG/KG, FOR DOSES 2-12
     Route: 042
     Dates: start: 20120112, end: 20120405
  25. TRASTUZUMAB [Suspect]
     Dosage: UNK
     Route: 065
     Dates: start: 20120619
  26. OLANZAPINE [Suspect]
     Indication: BIPOLAR DISORDER
     Dosage: 10 MG, DAILY
     Route: 065
     Dates: start: 20120126

REACTIONS (4)
  - Bipolar disorder [Recovered/Resolved]
  - Cognitive disorder [Recovered/Resolved]
  - Intentional drug misuse [Unknown]
  - Sedation [Unknown]
